FAERS Safety Report 17011885 (Version 2)
Quarter: 2019Q4

REPORT INFORMATION
  Report Type: Spontaneous
  Country: CA (occurrence: CA)
  Receive Date: 20191108
  Receipt Date: 20191219
  Transmission Date: 20200122
  Serious: Yes (Hospitalization, Disabling, Other)
  Sender: FDA-Public Use
  Company Number: CA-PFIZER INC-2018456486

PATIENT
  Age: 69 Year
  Sex: Female

DRUGS (3)
  1. PREDNISONE. [Concomitant]
     Active Substance: PREDNISONE
     Dosage: 10 MG, DAILY
  2. CODEINE [Concomitant]
     Active Substance: CODEINE
     Indication: RHEUMATOID ARTHRITIS
     Dosage: UNK
  3. XELJANZ [Suspect]
     Active Substance: TOFACITINIB CITRATE
     Indication: RHEUMATOID ARTHRITIS
     Dosage: 5 MG, 2X/DAY
     Route: 048
     Dates: start: 20181030

REACTIONS (11)
  - Muscle atrophy [Unknown]
  - Fall [Unknown]
  - Muscular weakness [Unknown]
  - Therapeutic response unexpected [Unknown]
  - Liver disorder [Unknown]
  - Pre-existing condition improved [Unknown]
  - Therapeutic product effect incomplete [Unknown]
  - Rheumatoid arthritis [Unknown]
  - Myelopathy [Unknown]
  - Blood calcium increased [Unknown]
  - Hypoaesthesia [Not Recovered/Not Resolved]

NARRATIVE: CASE EVENT DATE: 2018
